FAERS Safety Report 15739027 (Version 4)
Quarter: 2019Q2

REPORT INFORMATION
  Report Type: Report from Study
  Country: JP (occurrence: JP)
  Receive Date: 20181219
  Receipt Date: 20190620
  Transmission Date: 20190711
  Serious: Yes (Death)
  Sender: FDA-Public Use
  Company Number: JP-BEH-2018097873

PATIENT
  Age: 85 Year
  Sex: Male

DRUGS (4)
  1. BERIPLEX P/N [Suspect]
     Active Substance: COAGULATION FACTOR IX HUMAN\COAGULATION FACTOR VII HUMAN\COAGULATION FACTOR X HUMAN\PROTEIN C\PROTEIN S HUMAN\PROTHROMBIN
     Indication: HAEMORRHAGE
     Dosage: 1500 IU, TOT
     Route: 042
     Dates: start: 20180701
  2. WARFARIN [Concomitant]
     Active Substance: WARFARIN
     Dosage: 4 MG, QD
     Route: 048
     Dates: end: 20180701
  3. KAYTWO N [Concomitant]
     Active Substance: MENATETRENONE
     Indication: PROCOAGULANT THERAPY
     Dosage: 20 MG, QD
     Route: 065
     Dates: start: 20180701, end: 20180701
  4. NICARDIPINE [Concomitant]
     Active Substance: NICARDIPINE
     Dosage: UNK
     Route: 065
     Dates: start: 20180701, end: 20180702

REACTIONS (1)
  - Cerebral haemorrhage [Fatal]
